APPROVED DRUG PRODUCT: SERTRALINE HYDROCHLORIDE
Active Ingredient: SERTRALINE HYDROCHLORIDE
Strength: EQ 20MG BASE/ML
Dosage Form/Route: CONCENTRATE;ORAL
Application: A078861 | Product #001 | TE Code: AA
Applicant: AUROBINDO PHARMA LTD
Approved: Oct 31, 2008 | RLD: No | RS: No | Type: RX